FAERS Safety Report 4343017-8 (Version None)
Quarter: 2004Q2

REPORT INFORMATION
  Report Type: 
  Country: None (occurrence: None)
  Receive Date: 20040416
  Receipt Date: 20040407
  Transmission Date: 20050107
  Serious: Yes (Hospitalization)
  Sender: FDA-Public Use
  Company Number: 200310375BNE

PATIENT
  Age: 91 Year
  Sex: Male

DRUGS (5)
  1. ASPIRIN [Suspect]
     Dosage: 75 MG, TOTAL DAILY, ORAL
     Route: 048
  2. CLOPIDOGREL [Suspect]
     Dosage: 75 MG, TOTAL DAILY, ORAL
     Route: 048
  3. ACETAMINOPHEN [Concomitant]
  4. FUROSEMIDE [Concomitant]
  5. FYBOGEL [Concomitant]

REACTIONS (6)
  - CONFUSIONAL STATE [None]
  - DUODENAL ULCER [None]
  - DYSPNOEA [None]
  - FALL [None]
  - HAEMATOCHEZIA [None]
  - HAEMOGLOBIN DECREASED [None]
